FAERS Safety Report 10412922 (Version 1)
Quarter: 2014Q3

REPORT INFORMATION
  Report Type: Spontaneous
  Country: ES (occurrence: ES)
  Receive Date: 20140827
  Receipt Date: 20140827
  Transmission Date: 20150326
  Serious: Yes (Life-Threatening, Hospitalization)
  Sender: FDA-Public Use
  Company Number: ES-SA-2014SA111634

PATIENT
  Age: 66 Year
  Sex: Female
  Weight: 70 kg

DRUGS (9)
  1. PANTOPRAZOLE [Concomitant]
     Active Substance: PANTOPRAZOLE SODIUM
     Indication: POLYARTHRITIS
     Dosage: UN CP CADA 24 HORAS
     Route: 048
     Dates: start: 20140702
  2. EVEROLIMUS [Concomitant]
     Active Substance: EVEROLIMUS
     Indication: LIVER TRANSPLANT
     Dosage: 1 CP CADA 12 HORAS
     Route: 048
     Dates: start: 20140328
  3. DEXTROPROPOXYPHENE/METAMIZOLE MAGNESIUM [Concomitant]
     Indication: BACK PAIN
     Dosage: UNA AMPOLLA CADA 12 HORAS
     Route: 048
     Dates: start: 20140702, end: 20140705
  4. SEGURIL [Suspect]
     Active Substance: FUROSEMIDE
     Indication: LIVER TRANSPLANT
     Dosage: CINCO COMPRIMIDOS CADA 24 HORAS
     Route: 048
     Dates: start: 20140604
  5. CALCIUM CARBONATE/COLECALCIFEROL [Concomitant]
     Active Substance: CALCIUM CARBONATE\CHOLECALCIFEROL
     Indication: POLYARTHRITIS
     Dosage: 1 CP CADA 24 HORAS
     Route: 048
     Dates: start: 20140710, end: 20140721
  6. NITROFURANTOIN. [Interacting]
     Active Substance: NITROFURANTOIN
     Indication: CYSTITIS
     Dosage: UN CP CADA 12 HORAS
     Route: 048
     Dates: start: 20140704, end: 20140721
  7. METHYLPREDNISOLONE ACEPONATE [Concomitant]
     Active Substance: METHYLPREDNISOLONE ACEPONATE
     Indication: INTERTRIGO
     Dosage: UNA APLICACION CADA 12 HORAS CUTANEA
     Route: 061
     Dates: start: 20140617, end: 20140630
  8. HYDROXYZINE [Concomitant]
     Active Substance: HYDROXYZINE\HYDROXYZINE HYDROCHLORIDE
     Indication: ANXIETY
     Dosage: UN CP CADA 12 HORAS
     Route: 048
     Dates: start: 20140611, end: 20140716
  9. PROLIA [Interacting]
     Active Substance: DENOSUMAB
     Indication: POLYARTHRITIS
     Dosage: EVERY 6 MONTHS
     Route: 058
     Dates: start: 20140710, end: 20140710

REACTIONS (3)
  - Tetany [Recovering/Resolving]
  - Paraesthesia [Recovering/Resolving]
  - Medication error [Recovering/Resolving]

NARRATIVE: CASE EVENT DATE: 20140714
